FAERS Safety Report 17265348 (Version 2)
Quarter: 2020Q3

REPORT INFORMATION
  Report Type: Report from Study
  Country: None (occurrence: DE)
  Receive Date: 20200114
  Receipt Date: 20200716
  Transmission Date: 20201102
  Serious: Yes (Hospitalization)
  Sender: FDA-Public Use
  Company Number: DE-ABBVIE-20K-062-3227380-00

PATIENT
  Age: 71 Year
  Sex: Male
  Weight: 84 kg

DRUGS (4)
  1. SULTAMICILLIN [Concomitant]
     Active Substance: SULTAMICILLIN
     Indication: PRODUCT USED FOR UNKNOWN INDICATION
  2. UNACID [Concomitant]
     Indication: PRODUCT USED FOR UNKNOWN INDICATION
  3. KLACID [Concomitant]
     Active Substance: CLARITHROMYCIN
     Indication: PRODUCT USED FOR UNKNOWN INDICATION
  4. MAVIRET [Suspect]
     Active Substance: GLECAPREVIR\PIBRENTASVIR
     Indication: CHRONIC HEPATITIS C
     Route: 048
     Dates: start: 20190620, end: 20190821

REACTIONS (3)
  - Blood sodium decreased [Unknown]
  - Blood potassium decreased [Unknown]
  - Pneumonia [Recovered/Resolved]

NARRATIVE: CASE EVENT DATE: 20190816
